FAERS Safety Report 5481343-X (Version None)
Quarter: 2007Q4

REPORT INFORMATION
  Report Type: 
  Country: None (occurrence: None)
  Receive Date: 20071010
  Receipt Date: 20070927
  Transmission Date: 20080405
  Serious: No
  Sender: FDA-Public Use
  Company Number: GB-BAYER-200710818BNE

PATIENT
  Age: 68 Year
  Sex: Male
  Weight: 64 kg

DRUGS (23)
  1. CIPROFLOXACIN [Suspect]
     Indication: PROSTATITIS
     Dosage: TOTAL DAILY DOSE: 1000 MG
     Route: 048
     Dates: start: 20050104
  2. CIPROFLOXACIN [Suspect]
     Dosage: TOTAL DAILY DOSE: 1000 MG
     Route: 048
     Dates: start: 20041101
  3. CIPROFLOXACIN [Suspect]
     Dosage: TOTAL DAILY DOSE: 1000 MG
     Route: 048
     Dates: start: 20070723
  4. CIPROFLOXACIN [Suspect]
     Dosage: TOTAL DAILY DOSE: 1000 MG
     Route: 048
     Dates: start: 20061212
  5. CIPROFLOXACIN [Suspect]
     Dosage: TOTAL DAILY DOSE: 1000 MG
     Route: 048
     Dates: start: 20060913
  6. CIPROFLOXACIN [Suspect]
     Dosage: TOTAL DAILY DOSE: 1000 MG
     Route: 048
     Dates: start: 20060207
  7. CIPROFLOXACIN [Suspect]
     Dosage: TOTAL DAILY DOSE: 1000 MG
     Route: 048
     Dates: start: 20060203
  8. CIPROFLOXACIN [Suspect]
     Dosage: TOTAL DAILY DOSE: 1000 MG
     Route: 048
     Dates: start: 20051005
  9. CIPROFLOXACIN [Suspect]
     Dosage: TOTAL DAILY DOSE: 1000 MG
     Route: 048
     Dates: start: 20050926
  10. CIPROFLOXACIN [Suspect]
     Dosage: TOTAL DAILY DOSE: 1000 MG
     Route: 048
     Dates: start: 20050228
  11. CIPROFLOXACIN [Suspect]
     Dosage: TOTAL DAILY DOSE: 1000 MG
     Route: 048
     Dates: start: 20050110
  12. TRIMETHOPRIM [Concomitant]
     Indication: PROSTATITIS
     Dates: start: 20041018
  13. TRIMETHOPRIM [Concomitant]
     Dates: start: 20050131
  14. TRIMETHOPRIM [Concomitant]
     Dates: start: 20051220
  15. TRIMETHOPRIM [Concomitant]
     Dates: start: 20060824
  16. TRIMETHOPRIM [Concomitant]
     Dates: start: 20070122
  17. TRIMETHOPRIM [Concomitant]
     Dates: start: 20070820
  18. TRIMETHOPRIM [Concomitant]
     Dates: start: 20070102
  19. TRIMETHOPRIM [Concomitant]
     Dates: start: 20060420
  20. TRIMETHOPRIM [Concomitant]
     Dates: start: 20050613
  21. SOLPADOL [Concomitant]
     Route: 048
  22. TEMAZEPAM [Concomitant]
     Route: 048
  23. ATORVASTATIN CALCIUM [Concomitant]
     Route: 048

REACTIONS (3)
  - INTERCOSTAL NEURALGIA [None]
  - TINNITUS [None]
  - TREMOR [None]
